FAERS Safety Report 4885549-X (Version None)
Quarter: 2006Q1

REPORT INFORMATION
  Report Type: 
  Country: None (occurrence: None)
  Receive Date: 20060119
  Receipt Date: 20051208
  Transmission Date: 20060701
  Serious: Yes (Hospitalization)
  Sender: FDA-Public Use
  Company Number: US-MERCK-0512USA01573

PATIENT
  Age: 74 Year
  Sex: Male
  Weight: 105 kg

DRUGS (15)
  1. VIOXX [Suspect]
     Indication: ARTHRITIS
     Route: 048
     Dates: start: 19990101, end: 20040824
  2. PLAQUENIL [Concomitant]
     Route: 065
  3. NAPROSYN [Concomitant]
     Route: 065
  4. ADALAT [Concomitant]
     Route: 065
  5. LOPRESSOR [Concomitant]
     Route: 065
  6. [THERAPY UNSPECIFIED] [Concomitant]
     Route: 065
  7. LASIX [Concomitant]
     Route: 065
  8. MICRO-K [Concomitant]
     Route: 065
  9. LOTENSIN [Concomitant]
     Route: 065
  10. ALLOPURINOL [Concomitant]
     Route: 065
  11. ANTIVERT [Concomitant]
     Route: 065
  12. CELEBREX [Concomitant]
     Route: 065
  13. NORVASC [Concomitant]
     Route: 065
  14. ZOCOR [Concomitant]
     Route: 065
  15. METOPROLOL [Concomitant]
     Route: 065

REACTIONS (3)
  - CARDIAC MURMUR [None]
  - CHEST PAIN [None]
  - MYOCARDIAL INFARCTION [None]
